FAERS Safety Report 5165757-3 (Version None)
Quarter: 2006Q4

REPORT INFORMATION
  Report Type: 
  Country: None (occurrence: None)
  Receive Date: 20061128
  Receipt Date: 20061115
  Transmission Date: 20070319
  Serious: Yes (Other)
  Sender: FDA-Public Use
  Company Number: 2006115981

PATIENT
  Age: 78 Year
  Sex: Male

DRUGS (11)
  1. NORVASC [Suspect]
     Dosage: 5 MG (5 MG, 1 IN 1 D), ORAL
     Route: 048
     Dates: start: 20060322
  2. ARTHROTEC [Concomitant]
  3. FOSINOPRIL SODIUM [Concomitant]
  4. PLAVIX [Concomitant]
  5. ATORVASTATIN CALCIUM [Concomitant]
  6. OMEPRAZOLE [Concomitant]
  7. GLYBURIDE [Concomitant]
  8. SALBUTAMOL [Concomitant]
  9. LORAZEPAM [Concomitant]
  10. ATROVENT [Concomitant]
  11. SERTRALINE [Concomitant]

REACTIONS (3)
  - DENTAL EXAMINATION ABNORMAL [None]
  - GINGIVAL HYPERPLASIA [None]
  - ORAL PAIN [None]
